FAERS Safety Report 25929087 (Version 1)
Quarter: 2025Q4

REPORT INFORMATION
  Report Type: Spontaneous
  Country: US (occurrence: US)
  Receive Date: 20251016
  Receipt Date: 20251016
  Transmission Date: 20260118
  Serious: No
  Sender: ABBVIE
  Company Number: US-ABBVIE-6502053

PATIENT

DRUGS (3)
  1. SKYRIZI [Suspect]
     Active Substance: RISANKIZUMAB-RZAA
     Indication: Product used for unknown indication
     Route: 058
  2. COLLOIDAL SILVER [Concomitant]
     Active Substance: SILVER
     Indication: Product used for unknown indication
  3. COLLOIDAL SILVER [Concomitant]
     Active Substance: SILVER
     Indication: Product used for unknown indication
     Dosage: TIME INTERVAL: 0.14285714 DAYS: FOR 5 DAY

REACTIONS (2)
  - Ear infection [Recovered/Resolved]
  - Sinusitis [Recovered/Resolved]

NARRATIVE: CASE EVENT DATE: 20240101
